FAERS Safety Report 5955641-7 (Version None)
Quarter: 2008Q4

REPORT INFORMATION
  Report Type: 
  Country: None (occurrence: None)
  Receive Date: 20081117
  Receipt Date: 20081105
  Transmission Date: 20090506
  Serious: Yes (Hospitalization)
  Sender: FDA-Public Use
  Company Number: DE-PFIZER INC-2008093965

PATIENT
  Sex: Female
  Weight: 65 kg

DRUGS (14)
  1. LYRICA [Suspect]
     Indication: TRIGEMINAL NEURALGIA
     Route: 048
     Dates: start: 20061210
  2. TEMGESIC ^SCHERING-PLOUGH^ [Concomitant]
  3. CARBAMAZEPINE [Concomitant]
  4. VALORON N RETARD [Concomitant]
  5. ATMADISC [Concomitant]
  6. SYMBICORT [Concomitant]
  7. NEPRESOL [Concomitant]
  8. NEBILET [Concomitant]
  9. KATADOLON [Concomitant]
  10. SYMPAL [Concomitant]
  11. APSOMOL [Concomitant]
  12. NOVAMINSULFON ^BRAUN^ [Concomitant]
  13. GABAPENTIN [Concomitant]
  14. ANTIINFLAMMATORY/ANTIRHEUMATIC NON-STEROIDS [Concomitant]

REACTIONS (3)
  - ALANINE AMINOTRANSFERASE INCREASED [None]
  - ASPARTATE AMINOTRANSFERASE INCREASED [None]
  - GAMMA-GLUTAMYLTRANSFERASE INCREASED [None]
